FAERS Safety Report 9478197 (Version 3)
Quarter: 2013Q3

REPORT INFORMATION
  Report Type: Spontaneous
  Country: US (occurrence: US)
  Receive Date: 20130827
  Receipt Date: 20130903
  Transmission Date: 20140515
  Serious: Yes (Hospitalization, Other)
  Sender: FDA-Public Use
  Company Number: US-009507513-2010SP019262

PATIENT
  Age: 41 Year
  Sex: Female
  Weight: 71.22 kg

DRUGS (1)
  1. NUVARING [Suspect]
     Indication: HOT FLUSH
     Dosage: 1 RING VAGINALLY 3 WEEKS, LAST WEEK OFF
     Route: 067
     Dates: start: 20071009, end: 200803

REACTIONS (5)
  - Hypercoagulation [Unknown]
  - Lung infiltration [Recovering/Resolving]
  - Pulmonary embolism [Recovering/Resolving]
  - Pulmonary infarction [Recovering/Resolving]
  - Off label use [Unknown]
